FAERS Safety Report 9333510 (Version 1)
Quarter: 2013Q2

REPORT INFORMATION
  Report Type: Spontaneous
  Country: IT (occurrence: IT)
  Receive Date: 20130606
  Receipt Date: 20130606
  Transmission Date: 20140414
  Serious: Yes (Hospitalization)
  Sender: FDA-Public Use
  Company Number: IT-BRISTOL-MYERS SQUIBB COMPANY-18964866

PATIENT
  Age: 26 Year
  Sex: Male

DRUGS (4)
  1. ABILIFY [Suspect]
     Indication: BIPOLAR DISORDER
     Route: 048
     Dates: start: 20120904, end: 20120904
  2. TOLEP [Suspect]
     Indication: IDIOPATHIC GENERALISED EPILEPSY
     Route: 048
     Dates: start: 20120904, end: 20120904
  3. INSULIN LISPRO [Concomitant]
     Dosage: 1DF:100/U/ML;1 BOTTLE 10 ML
  4. LANTUS [Concomitant]

REACTIONS (2)
  - Sopor [Unknown]
  - Depressed level of consciousness [Unknown]
